FAERS Safety Report 14591508 (Version 3)
Quarter: 2018Q3

REPORT INFORMATION
  Report Type: Report from Study
  Country: US (occurrence: US)
  Receive Date: 20180302
  Receipt Date: 20180712
  Transmission Date: 20181010
  Serious: Yes (Hospitalization, Disabling)
  Sender: FDA-Public Use
  Company Number: US-ASTRAZENECA-2018SE26728

PATIENT
  Age: 21887 Day
  Sex: Female
  Weight: 56.4 kg

DRUGS (10)
  1. ATORVASTATIN [Concomitant]
     Active Substance: ATORVASTATIN
     Indication: HYPERLIPIDAEMIA
     Route: 048
     Dates: start: 2013
  2. LATMAX [Concomitant]
     Indication: DRY EYE
     Dosage: 0.5 % , AS REQUIRED
     Route: 047
     Dates: start: 2012
  3. OXYCODONE [Concomitant]
     Active Substance: OXYCODONE
     Indication: BACK PAIN
     Dosage: 10.0MG AS REQUIRED
     Route: 048
     Dates: start: 201509
  4. LISINOPRIL. [Concomitant]
     Active Substance: LISINOPRIL
     Indication: BLOOD PRESSURE SYSTOLIC ABNORMAL
     Dosage: 10.0MG AS REQUIRED
     Route: 048
  5. DURVALUMAB. [Suspect]
     Active Substance: DURVALUMAB
     Indication: NON-SMALL CELL LUNG CANCER
     Dosage: 1500 MG
     Route: 042
     Dates: start: 20170919
  6. MOCETINOSTAT [Suspect]
     Active Substance: MOCETINOSTAT
     Indication: NON-SMALL CELL LUNG CANCER
     Dosage: 70 MG
     Route: 048
     Dates: start: 20170911
  7. MOCETINOSTAT [Suspect]
     Active Substance: MOCETINOSTAT
     Indication: NON-SMALL CELL LUNG CANCER
     Dosage: 70 MG
     Route: 048
     Dates: start: 20170919
  8. FOLIC ACID. [Concomitant]
     Active Substance: FOLIC ACID
     Indication: NUTRITIONAL SUPPLEMENTATION
     Route: 048
     Dates: start: 2007
  9. FEXOFENADINE [Concomitant]
     Active Substance: FEXOFENADINE\FEXOFENADINE HYDROCHLORIDE
     Indication: HYPERSENSITIVITY
     Dosage: 180.0MG AS REQUIRED
     Route: 048
     Dates: start: 2007
  10. PEPCID [Concomitant]
     Active Substance: FAMOTIDINE
     Indication: GASTROOESOPHAGEAL REFLUX DISEASE
     Dosage: 40.0MG AS REQUIRED
     Route: 048
     Dates: start: 201602

REACTIONS (1)
  - Mucosal inflammation [Recovered/Resolved]

NARRATIVE: CASE EVENT DATE: 20180224
